FAERS Safety Report 14982833 (Version 1)
Quarter: 2018Q2

REPORT INFORMATION
  Report Type: Spontaneous
  Country: US (occurrence: US)
  Receive Date: 20180515
  Receipt Date: 20180515
  Transmission Date: 20180711
  Serious: Yes (Other)
  Sender: FDA-Public Use
  Company Number: None

PATIENT
  Age: 65 Year
  Sex: Male
  Weight: 77.11 kg

DRUGS (13)
  1. LASIX [Concomitant]
     Active Substance: FUROSEMIDE
  2. ENALAPRIL [Concomitant]
     Active Substance: ENALAPRIL
  3. NITROGLYCERIN. [Concomitant]
     Active Substance: NITROGLYCERIN
  4. OXYCODONE [Concomitant]
     Active Substance: OXYCODONE
  5. ASPIRIN. [Concomitant]
     Active Substance: ASPIRIN
  6. FUROSEMIDE 80MG TABLETS [Suspect]
     Active Substance: FUROSEMIDE SODIUM
     Indication: OEDEMA
     Dosage: ?          QUANTITY:1 DF DOSAGE FORM;?
     Route: 048
     Dates: start: 20180418, end: 20180422
  7. PRASUGREL. [Concomitant]
     Active Substance: PRASUGREL
  8. SPIRONOLACTONE. [Concomitant]
     Active Substance: SPIRONOLACTONE
  9. VITAMIN D [Concomitant]
     Active Substance: CHOLECALCIFEROL
  10. MAGNESIUM [Concomitant]
     Active Substance: MAGNESIUM
  11. FUROSEMIDE 80MG TABLETS [Suspect]
     Active Substance: FUROSEMIDE SODIUM
     Indication: CHRONIC KIDNEY DISEASE
     Dosage: ?          QUANTITY:1 DF DOSAGE FORM;?
     Route: 048
     Dates: start: 20180418, end: 20180422
  12. ULORIC [Concomitant]
     Active Substance: FEBUXOSTAT
  13. LORAZAPAM [Concomitant]
     Active Substance: LORAZEPAM

REACTIONS (10)
  - Neuropathy peripheral [None]
  - Headache [None]
  - Abdominal discomfort [None]
  - Oedema [None]
  - Condition aggravated [None]
  - Malaise [None]
  - Pain [None]
  - Asthenia [None]
  - Weight increased [None]
  - Drug ineffective [None]

NARRATIVE: CASE EVENT DATE: 20180418
